FAERS Safety Report 12442861 (Version 1)
Quarter: 2016Q2

REPORT INFORMATION
  Report Type: Spontaneous
  Country: IT (occurrence: None)
  Receive Date: 20160606
  Receipt Date: 20160606
  Transmission Date: 20160815
  Serious: Yes (Disabling)
  Sender: FDA-Public Use
  Company Number: None

PATIENT
  Age: 68 Year
  Sex: Female
  Weight: 57 kg

DRUGS (3)
  1. LIPITOR [Suspect]
     Active Substance: ATORVASTATIN CALCIUM
     Indication: BLOOD CHOLESTEROL INCREASED
     Route: 048
  2. COQ10 [Concomitant]
     Active Substance: UBIDECARENONE
  3. HIGH BLOOD PRESSURE MEDS [Concomitant]

REACTIONS (10)
  - Speech disorder [None]
  - Head discomfort [None]
  - Musculoskeletal disorder [None]
  - Pain in extremity [None]
  - Musculoskeletal stiffness [None]
  - Muscle spasms [None]
  - Memory impairment [None]
  - Burning sensation [None]
  - Abasia [None]
  - Epistaxis [None]
